FAERS Safety Report 7300691-1 (Version None)
Quarter: 2011Q1

REPORT INFORMATION
  Report Type: 
  Country: None (occurrence: None)
  Receive Date: 20110207
  Receipt Date: 20110124
  Transmission Date: 20110831
  Serious: Yes (Other)
  Sender: FDA-Public Use
  Company Number: 2011SP001540

PATIENT
  Sex: Male

DRUGS (7)
  1. CELEBREX [Concomitant]
  2. FLAGYL [Concomitant]
  3. MIRTAZAPINE [Concomitant]
  4. KEFLEX [Concomitant]
  5. COVERSYL PLUS [Concomitant]
  6. PEGATRON (PEGYLATED INTERFERON ALFA-2B W/RIBAVIRIN) [Suspect]
     Indication: HEPATITIS C
     Dosage: 150 MCG;QW
     Dates: start: 20090710, end: 20100611
  7. SEROQUEL [Concomitant]

REACTIONS (4)
  - INJECTION SITE ULCER [None]
  - BACTERIAL TEST POSITIVE [None]
  - IMPAIRED HEALING [None]
  - STAPHYLOCOCCUS TEST POSITIVE [None]
